FAERS Safety Report 7974111-8 (Version None)
Quarter: 2011Q4

REPORT INFORMATION
  Report Type: 
  Country: None (occurrence: None)
  Receive Date: 20111213
  Receipt Date: 20111207
  Transmission Date: 20120403
  Serious: Yes (Other)
  Sender: FDA-Public Use
  Company Number: PHHY2011IN108115

PATIENT
  Age: 45 Year
  Sex: Male

DRUGS (1)
  1. CEFEPIME [Suspect]
     Indication: RESPIRATORY TRACT INFECTION

REACTIONS (2)
  - TUBERCULOSIS [None]
  - MYOCLONUS [None]
